FAERS Safety Report 21643882 (Version 4)
Quarter: 2023Q1

REPORT INFORMATION
  Report Type: Other
  Country: GB (occurrence: GB)
  Receive Date: 20221125
  Receipt Date: 20230110
  Transmission Date: 20230417
  Serious: Yes (Other)
  Sender: FDA-Public Use
  Company Number: GB-ABBVIE-22K-167-4489582-00

PATIENT

DRUGS (64)
  1. SOLIFENACIN SUCCINATE [Suspect]
     Active Substance: SOLIFENACIN SUCCINATE
     Indication: Hypertonic bladder
     Dosage: 5 MILLIGRAM
     Route: 065
  2. SOLIFENACIN SUCCINATE [Suspect]
     Active Substance: SOLIFENACIN SUCCINATE
     Dosage: 5 MILLIGRAM
     Route: 050
  3. CARBIDOPA\LEVODOPA [Suspect]
     Active Substance: CARBIDOPA\LEVODOPA
     Indication: Parkinson^s disease
     Dosage: UNK, MD 9.5 ML, CR 3.7 ML, ED 2.2 ML PUMP RUNNING 7 A-M TO 10 PM
     Route: 050
     Dates: start: 2022, end: 2022
  4. CARBIDOPA\LEVODOPA [Suspect]
     Active Substance: CARBIDOPA\LEVODOPA
     Dosage: UNK, 3.7 CONTINUOUS RATE, MORNING DOSE 9.5, EXTRA DOSE 2.2, PUMP RUNS FROM 7 AM TO 10 PM, 20MGS/5MGS
     Route: 050
  5. CARBIDOPA\LEVODOPA [Suspect]
     Active Substance: CARBIDOPA\LEVODOPA
     Dosage: UNK, DUODOPA 20MGS/5MGS; MD: 9.5MLS, CR: 3.5MLS, ED: 2.2MLSFIRST ADMINISTRATION DATE: IN 2022
     Route: 050
     Dates: end: 2022
  6. CARBIDOPA\LEVODOPA [Suspect]
     Active Substance: CARBIDOPA\LEVODOPA
     Dosage: UNK, MD: 9.5, CR: 3.1, ED: 2.2FIRST ADMINISTRATION DATE: 2022
     Route: 050
     Dates: start: 2022, end: 2022
  7. CARBIDOPA\LEVODOPA [Suspect]
     Active Substance: CARBIDOPA\LEVODOPA
     Dosage: UNK, DUODOPA 20MGS/5MGS; MD: 9.5MLS, CR: 3.5MLS, ED: 2.2MLS
     Route: 050
     Dates: start: 2022, end: 2022
  8. CARBIDOPA\LEVODOPA [Suspect]
     Active Substance: CARBIDOPA\LEVODOPA
     Dosage: UNK, MD: 9.5MLS, CR: 3.3MLS, ED: 2.2MLS, 20MGS/5MGSFIRST ADMINISTRATION DATE: 2022; ;
     Route: 050
  9. CARBIDOPA\LEVODOPA [Suspect]
     Active Substance: CARBIDOPA\LEVODOPA
     Dosage: UNK
     Route: 050
  10. CARBIDOPA\LEVODOPA [Suspect]
     Active Substance: CARBIDOPA\LEVODOPA
     Dosage: UNK, MD 9.5 ML, CR 3.7 ML, ED 2.2 ML PUMP RUNNING 7 A-M TO 10 PM
     Route: 050
     Dates: start: 2022
  11. CARBIDOPA\LEVODOPA [Suspect]
     Active Substance: CARBIDOPA\LEVODOPA
     Dosage: UNK
     Route: 050
     Dates: start: 2022
  12. CARBIDOPA\LEVODOPA [Suspect]
     Active Substance: CARBIDOPA\LEVODOPA
     Indication: Parkinson^s disease
     Dosage: UNK, PUMP RUNS FROM 7 AM TO 10 PMFIRST ADMINISTRATION DATE: IN 2022
     Route: 050
  13. CARBIDOPA\LEVODOPA [Suspect]
     Active Substance: CARBIDOPA\LEVODOPA
     Dosage: UNK, FIRST ADMINISTRATION DATE: IN 2022
     Route: 050
  14. CARBIDOPA\LEVODOPA [Suspect]
     Active Substance: CARBIDOPA\LEVODOPA
     Dosage: UNK, FIRST ADMINISTRATION DATE: IN 2022
     Route: 050
  15. CARBIDOPA\LEVODOPA [Suspect]
     Active Substance: CARBIDOPA\LEVODOPA
     Dosage: UNK
     Route: 050
  16. CITALOPRAM [Concomitant]
     Active Substance: CITALOPRAM HYDROBROMIDE
     Indication: Product used for unknown indication
     Dosage: 40 MILLIGRAM, QD
     Route: 065
  17. SENNA [Concomitant]
     Active Substance: SENNA LEAF\SENNOSIDES\SENNOSIDES A AND B
     Indication: Product used for unknown indication
     Dosage: UNK UNK, HS, 1-2 TABLETS NIGHT
     Route: 065
  18. SENNA [Concomitant]
     Active Substance: SENNA LEAF\SENNOSIDES\SENNOSIDES A AND B
     Dosage: UNK UNK, HS, 1-2 TABLETS NIGHT
     Route: 065
  19. SENNA [Concomitant]
     Active Substance: SENNA LEAF\SENNOSIDES\SENNOSIDES A AND B
     Dosage: UNK UNK, HS, 1-2 TABLETS NIGHT
     Route: 065
  20. SENNA [Concomitant]
     Active Substance: SENNA LEAF\SENNOSIDES\SENNOSIDES A AND B
     Dosage: UNK
     Route: 065
  21. SENNA [Concomitant]
     Active Substance: SENNA LEAF\SENNOSIDES\SENNOSIDES A AND B
     Dosage: UNK
     Route: 065
  22. SENNA [Concomitant]
     Active Substance: SENNA LEAF\SENNOSIDES\SENNOSIDES A AND B
     Dosage: UNK
     Route: 065
  23. SENNA [Concomitant]
     Active Substance: SENNA LEAF\SENNOSIDES\SENNOSIDES A AND B
     Dosage: UNK UNK, HS, 1-2 TABLETS NIGHT
     Route: 065
  24. SENNA [Concomitant]
     Active Substance: SENNA LEAF\SENNOSIDES\SENNOSIDES A AND B
     Dosage: UNK
     Route: 065
  25. MIRABEGRON [Concomitant]
     Active Substance: MIRABEGRON
     Indication: Product used for unknown indication
     Dosage: 50 MILLIGRAM, AM, (1TAB AT 9AM PER DAY)
     Route: 065
  26. CLONAZEPAM [Concomitant]
     Active Substance: CLONAZEPAM
     Indication: Product used for unknown indication
     Dosage: 0.25 MILLIGRAM, HS
     Route: 065
  27. CLONAZEPAM [Concomitant]
     Active Substance: CLONAZEPAM
     Indication: Product used for unknown indication
     Dosage: 500 MICROGRAM, TAKES HALF A TABLET AT 22:00;
     Route: 065
  28. POLYETHYLENE GLYCOL 3350\POTASSIUM CHLORIDE\SODIUM BICARBONATE\SODIUM [Concomitant]
     Active Substance: POLYETHYLENE GLYCOL 3350\POTASSIUM CHLORIDE\SODIUM BICARBONATE\SODIUM CHLORIDE
     Indication: Product used for unknown indication
     Dosage: UNK, QD, ONE SACHETS DAILY
     Route: 065
  29. POLYETHYLENE GLYCOL 3350\POTASSIUM CHLORIDE\SODIUM BICARBONATE\SODIUM [Concomitant]
     Active Substance: POLYETHYLENE GLYCOL 3350\POTASSIUM CHLORIDE\SODIUM BICARBONATE\SODIUM CHLORIDE
     Dosage: UNK, QD, ONE SACHETS DAILY
     Route: 065
  30. POLYETHYLENE GLYCOL 3350\POTASSIUM CHLORIDE\SODIUM BICARBONATE\SODIUM [Concomitant]
     Active Substance: POLYETHYLENE GLYCOL 3350\POTASSIUM CHLORIDE\SODIUM BICARBONATE\SODIUM CHLORIDE
     Dosage: UNK, QD, ONE SACHETS DAILY
     Route: 065
  31. POLYETHYLENE GLYCOL 3350\POTASSIUM CHLORIDE\SODIUM BICARBONATE\SODIUM [Concomitant]
     Active Substance: POLYETHYLENE GLYCOL 3350\POTASSIUM CHLORIDE\SODIUM BICARBONATE\SODIUM CHLORIDE
     Dosage: UNK UNK, QD, TWO SACHETS DAILY
     Route: 065
  32. POLYETHYLENE GLYCOL 3350\POTASSIUM CHLORIDE\SODIUM BICARBONATE\SODIUM [Concomitant]
     Active Substance: POLYETHYLENE GLYCOL 3350\POTASSIUM CHLORIDE\SODIUM BICARBONATE\SODIUM CHLORIDE
     Dosage: UNK, QD, ONE SACHETS DAILY
     Route: 065
  33. POLYETHYLENE GLYCOL 3350\POTASSIUM CHLORIDE\SODIUM BICARBONATE\SODIUM [Concomitant]
     Active Substance: POLYETHYLENE GLYCOL 3350\POTASSIUM CHLORIDE\SODIUM BICARBONATE\SODIUM CHLORIDE
     Dosage: UNK, QD, ONE SACHETS DAILY
     Route: 065
  34. POLYETHYLENE GLYCOL 3350\POTASSIUM CHLORIDE\SODIUM BICARBONATE\SODIUM [Concomitant]
     Active Substance: POLYETHYLENE GLYCOL 3350\POTASSIUM CHLORIDE\SODIUM BICARBONATE\SODIUM CHLORIDE
     Dosage: UNK, QD, ONE SACHETS DAILY
     Route: 065
  35. POLYETHYLENE GLYCOL 3350\POTASSIUM CHLORIDE\SODIUM BICARBONATE\SODIUM [Concomitant]
     Active Substance: POLYETHYLENE GLYCOL 3350\POTASSIUM CHLORIDE\SODIUM BICARBONATE\SODIUM CHLORIDE
     Dosage: UNK, QD, ONE SACHETS DAILY
     Route: 065
  36. POLYETHYLENE GLYCOL 3350\POTASSIUM CHLORIDE\SODIUM BICARBONATE\SODIUM [Concomitant]
     Active Substance: POLYETHYLENE GLYCOL 3350\POTASSIUM CHLORIDE\SODIUM BICARBONATE\SODIUM CHLORIDE
     Dosage: UNK UNK, QD, TWO SACHETS DAILY
     Route: 065
  37. POLYETHYLENE GLYCOL 3350\POTASSIUM CHLORIDE\SODIUM BICARBONATE\SODIUM [Concomitant]
     Active Substance: POLYETHYLENE GLYCOL 3350\POTASSIUM CHLORIDE\SODIUM BICARBONATE\SODIUM CHLORIDE
     Dosage: UNK UNK, QD, TWO SACHETS DAILY
     Route: 065
  38. SINEMET [Concomitant]
     Active Substance: CARBIDOPA\LEVODOPA
     Indication: Product used for unknown indication
     Dosage: UNK, 25/100 MG, 1 TABLET5 TIMES DAILY(7 AM,10 AM,1 PM,4 PM,7PM)
     Route: 065
  39. SINEMET [Concomitant]
     Active Substance: CARBIDOPA\LEVODOPA
     Dosage: UNK, 25/100, 1 TABLET; 5 TIMES, 7 AM, 10 AM, 1 PM, 4 PM, 7 PM
     Route: 065
  40. SINEMET [Concomitant]
     Active Substance: CARBIDOPA\LEVODOPA
     Dosage: 62.5 MILLIGRAM, HS (ONE TABLET PRN OVERNIGHT;)
     Route: 065
  41. SINEMET [Concomitant]
     Active Substance: CARBIDOPA\LEVODOPA
     Dosage: UNK, UNK, 25/100, 1 TABLET; 5 TIMES, 7 AM, 10 AM, 1 PM, 4 PM, 7 PM
     Route: 065
  42. SINEMET [Concomitant]
     Active Substance: CARBIDOPA\LEVODOPA
     Dosage: 62.5 MILLIGRAM
     Route: 065
  43. SINEMET [Concomitant]
     Active Substance: CARBIDOPA\LEVODOPA
     Dosage: UNK, 25/100, 1 TABLET; 5 TIMES, 7 AM, 10 AM, 1 PM, 4 PM, 7 PM
     Route: 065
  44. SINEMET [Concomitant]
     Active Substance: CARBIDOPA\LEVODOPA
     Dosage: 1 DOSAGE FORM, HS (ONE TABLET NOCTE (10 PM);)
     Route: 065
  45. CARBIDOPA\LEVODOPA [Concomitant]
     Active Substance: CARBIDOPA\LEVODOPA
     Indication: Product used for unknown indication
     Dosage: 1 DOSAGE FORM, 25/100 ONE TABLET
     Route: 065
  46. CARBIDOPA\LEVODOPA [Concomitant]
     Active Substance: CARBIDOPA\LEVODOPA
     Dosage: 1 DOSAGE FORM, PRN, (12.5/50 ONE TABLET PRN OVERNIGHT)
     Route: 065
  47. CARBIDOPA\LEVODOPA [Concomitant]
     Active Substance: CARBIDOPA\LEVODOPA
     Dosage: 1 DOSAGE FORM, 25/100 ONE TABLET
     Route: 065
  48. CARBIDOPA\LEVODOPA [Concomitant]
     Active Substance: CARBIDOPA\LEVODOPA
     Dosage: 1 DOSAGE FORM, 25/100 ONE TABLET
     Route: 065
  49. CARBIDOPA\LEVODOPA [Concomitant]
     Active Substance: CARBIDOPA\LEVODOPA
     Dosage: 1 DOSAGE FORM, HS, (ONE TABLET NOCTE (10 PM))
     Route: 065
  50. CARBIDOPA\LEVODOPA [Concomitant]
     Active Substance: CARBIDOPA\LEVODOPA
     Dosage: 1 DOSAGE FORM, HS, (ONE TABLET NOCTE (10 PM))
     Route: 065
  51. CARBIDOPA\LEVODOPA [Concomitant]
     Active Substance: CARBIDOPA\LEVODOPA
     Dosage: 1 DOSAGE FORM, HS, (ONE TABLET NOCTE (10 PM))
     Route: 065
  52. CARBIDOPA\LEVODOPA [Concomitant]
     Active Substance: CARBIDOPA\LEVODOPA
     Dosage: 1 DOSAGE FORM, PRN, (12.5/50 ONE TABLET PRN OVERNIGHT)
     Route: 065
  53. CARBIDOPA\LEVODOPA [Concomitant]
     Active Substance: CARBIDOPA\LEVODOPA
     Indication: Product used for unknown indication
     Dosage: UNK UNK, (5 TIMES DAILY(7 AM,10 AM,1 PM,4 PM,7PM))
     Route: 065
  54. CARBIDOPA\LEVODOPA [Concomitant]
     Active Substance: CARBIDOPA\LEVODOPA
     Dosage: UNK UNK, (5 TIMES DAILY(7 AM,10 AM,1 PM,4 PM,7PM))
     Route: 065
  55. CARBIDOPA\LEVODOPA [Concomitant]
     Active Substance: CARBIDOPA\LEVODOPA
     Dosage: UNK UNK, (5 TIMES DAILY(7 AM,10 AM,1 PM,4 PM,7PM))
     Route: 065
  56. VITAMIN D3 [Concomitant]
     Active Substance: CHOLECALCIFEROL
     Indication: Product used for unknown indication
     Dosage: UNK, QD
     Route: 065
  57. SINEMET [Concomitant]
     Active Substance: CARBIDOPA\LEVODOPA
     Indication: Product used for unknown indication
     Dosage: UNK, 12.5/50MGS
     Route: 065
  58. SINEMET [Concomitant]
     Active Substance: CARBIDOPA\LEVODOPA
     Dosage: UNK, 12.5/50MGS
     Route: 065
  59. SINEMET [Concomitant]
     Active Substance: CARBIDOPA\LEVODOPA
     Dosage: UNK, 12.5/50MGS
     Route: 065
  60. SINEMET [Concomitant]
     Active Substance: CARBIDOPA\LEVODOPA
     Dosage: UNK, 12.5/50MGS
     Route: 065
  61. CARBIDOPA\LEVODOPA [Concomitant]
     Active Substance: CARBIDOPA\LEVODOPA
     Indication: Product used for unknown indication
     Dosage: UNK, HALF SINEMET CR
     Route: 065
  62. CARBIDOPA\LEVODOPA [Concomitant]
     Active Substance: CARBIDOPA\LEVODOPA
     Dosage: 1 DOSAGE FORM, HS, (ONE TABLET NOCTE (10 PM))
     Route: 065
  63. CARBIDOPA\LEVODOPA [Concomitant]
     Active Substance: CARBIDOPA\LEVODOPA
     Dosage: 1 DOSAGE FORM, HS, (ONE TABLET NOCTE (10 PM))
     Route: 065
  64. OMEPRAZOLE [Concomitant]
     Active Substance: OMEPRAZOLE
     Indication: Product used for unknown indication
     Dosage: 20 MILLIGRAM
     Route: 065

REACTIONS (46)
  - Dystonia [Unknown]
  - Chest discomfort [Not Recovered/Not Resolved]
  - Adverse drug reaction [Unknown]
  - Feeling hot [Unknown]
  - Musculoskeletal disorder [Unknown]
  - Restless legs syndrome [Unknown]
  - Euphoric mood [Unknown]
  - Muscle spasms [Unknown]
  - Mobility decreased [Unknown]
  - Middle insomnia [Recovered/Resolved]
  - Hyperhidrosis [Unknown]
  - Dyspnoea [Unknown]
  - Freezing phenomenon [Unknown]
  - Anxiety [Unknown]
  - Bradykinesia [Unknown]
  - On and off phenomenon [Unknown]
  - Pain [Unknown]
  - Muscle twitching [Unknown]
  - Feeling abnormal [Unknown]
  - Fall [Unknown]
  - Contusion [Not Recovered/Not Resolved]
  - Weight decreased [Unknown]
  - Tearfulness [Unknown]
  - Dyskinesia [Not Recovered/Not Resolved]
  - Initial insomnia [Recovered/Resolved]
  - Depressed mood [Unknown]
  - Dry mouth [Unknown]
  - Micturition urgency [Unknown]
  - Pollakiuria [Unknown]
  - Hypertonic bladder [Unknown]
  - Fatigue [Unknown]
  - Pruritus [Unknown]
  - Somnolence [Unknown]
  - Headache [Unknown]
  - Abdominal pain [Not Recovered/Not Resolved]
  - Asthenia [Unknown]
  - Nocturia [Unknown]
  - Tinnitus [Unknown]
  - Ear pruritus [Unknown]
  - Muscle rigidity [Unknown]
  - Head discomfort [Unknown]
  - Gait disturbance [Unknown]
  - Dysphagia [Unknown]
  - Stoma site pain [Unknown]
  - Malaise [Unknown]
  - Abdominal discomfort [Unknown]

NARRATIVE: CASE EVENT DATE: 20210101
